FAERS Safety Report 11945024 (Version 4)
Quarter: 2016Q1

REPORT INFORMATION
  Report Type: Spontaneous
  Country: JP (occurrence: JP)
  Receive Date: 20160125
  Receipt Date: 20160229
  Transmission Date: 20160526
  Serious: Yes (Hospitalization, Other)
  Sender: FDA-Public Use
  Company Number: JP-JNJFOC-20160115986

PATIENT
  Age: 76 Year
  Sex: Female

DRUGS (1)
  1. REMINYL [Suspect]
     Active Substance: GALANTAMINE
     Indication: PRODUCT USED FOR UNKNOWN INDICATION
     Route: 048

REACTIONS (4)
  - Pyelonephritis acute [Recovering/Resolving]
  - Shock [Unknown]
  - Depressed level of consciousness [Unknown]
  - Urinary retention [Unknown]

NARRATIVE: CASE EVENT DATE: 20151228
